FAERS Safety Report 17976750 (Version 1)
Quarter: 2020Q3

REPORT INFORMATION
  Report Type: Report from Study
  Country: US (occurrence: US)
  Receive Date: 20200703
  Receipt Date: 20200703
  Transmission Date: 20201103
  Serious: Yes (Death)
  Sender: FDA-Public Use
  Company Number: US-BIOGEN-2020BI00890996

PATIENT
  Sex: Female

DRUGS (1)
  1. TECFIDERA [Suspect]
     Active Substance: DIMETHYL FUMARATE
     Indication: MULTIPLE SCLEROSIS
     Route: 065
     Dates: start: 201909

REACTIONS (9)
  - Liver disorder [Fatal]
  - Hepatic steatosis [Unknown]
  - Ascites [Unknown]
  - Red blood cell abnormality [Unknown]
  - Dysphagia [Unknown]
  - Blood potassium abnormal [Unknown]
  - Weight decreased [Unknown]
  - Hepatic enzyme increased [Unknown]
  - Pain [Unknown]
